FAERS Safety Report 9007368 (Version 1)
Quarter: 2013Q1

REPORT INFORMATION
  Report Type: Spontaneous
  Country: LK (occurrence: LK)
  Receive Date: 20130110
  Receipt Date: 20130110
  Transmission Date: 20140127
  Serious: Yes (Other)
  Sender: FDA-Public Use
  Company Number: LK-PFIZER INC-2013008767

PATIENT
  Age: 43 Year
  Sex: Male

DRUGS (5)
  1. VENLAFAXINE HYDROCHLORIDE [Suspect]
     Indication: DEPRESSION
     Dosage: 75 MG, 1X/DAY
     Route: 048
  2. LEVODOPA-CARBIDOPA [Concomitant]
     Dosage: 25/100 MG; 3X/DAY
     Route: 048
  3. AMANTADINE [Concomitant]
     Indication: PARKINSONISM
     Dosage: 100 MG, 2X/DAY
     Route: 048
  4. BENZHEXOL [Concomitant]
     Indication: PARKINSONISM
     Dosage: 2 MG, DAILY
     Route: 048
  5. ROPINIROLE [Concomitant]
     Indication: PARKINSONISM
     Dosage: 0.5 MG, 3X/DAY
     Route: 048

REACTIONS (5)
  - Encephalopathy [Recovered/Resolved]
  - Renal failure acute [Recovered/Resolved]
  - Pneumonia [Recovered/Resolved]
  - Serotonin syndrome [Recovered/Resolved]
  - Rhabdomyolysis [Recovered/Resolved]
